FAERS Safety Report 5616659-7 (Version None)
Quarter: 2008Q1

REPORT INFORMATION
  Report Type: 
  Country: None (occurrence: None)
  Receive Date: 20080206
  Receipt Date: 20080206
  Transmission Date: 20080703
  Serious: Yes (Disabling)
  Sender: FDA-Public Use
  Company Number: None

PATIENT
  Age: 44 Year
  Sex: Female
  Weight: 104.3273 kg

DRUGS (1)
  1. PROAIR HFA [Suspect]
     Indication: ASTHMA
     Dosage: 90 MCG  2 PUFFS AS NEEDED INHAL
     Route: 055
     Dates: start: 20071001

REACTIONS (3)
  - COUGH [None]
  - DYSPNOEA [None]
  - WHEEZING [None]
